FAERS Safety Report 13414726 (Version 1)
Quarter: 2017Q2

REPORT INFORMATION
  Report Type: Spontaneous
  Country: US (occurrence: US)
  Receive Date: 20170407
  Receipt Date: 20170407
  Transmission Date: 20170830
  Serious: No
  Sender: FDA-Public Use
  Company Number: US-BRISTOL-MYERS SQUIBB COMPANY-BMS-2017-028722

PATIENT
  Sex: Female

DRUGS (1)
  1. SPRYCEL [Suspect]
     Active Substance: DASATINIB
     Indication: WHITE BLOOD CELL DISORDER
     Dosage: 80 MG, QD
     Route: 048
     Dates: start: 20161208

REACTIONS (3)
  - Product use in unapproved indication [Unknown]
  - Rash [Unknown]
  - Underdose [Unknown]
